FAERS Safety Report 23098438 (Version 1)
Quarter: 2023Q4

REPORT INFORMATION
  Report Type: Spontaneous
  Country: CA (occurrence: CA)
  Receive Date: 20231023
  Receipt Date: 20231023
  Transmission Date: 20240110
  Serious: Yes (Death, Other)
  Sender: FDA-Public Use
  Company Number: CA-PFIZER INC-202300143366

PATIENT
  Age: 66 Year
  Sex: Male
  Weight: 72.4 kg

DRUGS (7)
  1. RUXIENCE [Suspect]
     Active Substance: RITUXIMAB-PVVR
     Indication: Granulomatosis with polyangiitis
     Dosage: 637 MG, WEEKLY FOR 4 WEEKS
     Route: 042
  2. RUXIENCE [Suspect]
     Active Substance: RITUXIMAB-PVVR
     Dosage: 700 MG DOSE 2 OF 4
     Route: 042
     Dates: start: 20230331
  3. RUXIENCE [Suspect]
     Active Substance: RITUXIMAB-PVVR
     Dosage: 700 MG, WEEK 3 (ONCE WEEKLY FOR 4 WEEKS)(SUPPOSED TO RECEIVE 637MG)
     Route: 042
     Dates: start: 20230406
  4. RUXIENCE [Suspect]
     Active Substance: RITUXIMAB-PVVR
     Dosage: 700 MG, WEEK 3 (ONCE WEEKLY FOR 4 WEEKS)(SUPPOSED TO RECEIVE 637MG)
     Route: 042
     Dates: start: 20230406
  5. RUXIENCE [Suspect]
     Active Substance: RITUXIMAB-PVVR
     Dosage: 700 MG
     Route: 042
     Dates: start: 20230414
  6. RUXIENCE [Suspect]
     Active Substance: RITUXIMAB-PVVR
     Dosage: 700 MG
     Route: 042
     Dates: start: 20230414
  7. PREDNISONE [Concomitant]
     Active Substance: PREDNISONE
     Dosage: 60 MG

REACTIONS (7)
  - Death [Fatal]
  - Cough [Unknown]
  - Gait disturbance [Unknown]
  - Speech disorder [Unknown]
  - Asthenia [Unknown]
  - Fatigue [Unknown]
  - Incorrect dose administered [Unknown]

NARRATIVE: CASE EVENT DATE: 20230331
